FAERS Safety Report 9355198 (Version 6)
Quarter: 2014Q2

REPORT INFORMATION
  Report Type: Report from Study
  Country: CA (occurrence: CA)
  Receive Date: 20130619
  Receipt Date: 20140515
  Transmission Date: 20141212
  Serious: Yes (Death, Hospitalization, Other)
  Sender: FDA-Public Use
  Company Number: PHHY2013CA061806

PATIENT
  Age: 29 Year
  Sex: Male

DRUGS (18)
  1. CLOZARIL [Suspect]
     Indication: SCHIZOPHRENIA
     Dosage: UNK
     Dates: start: 20020403
  2. CLOZARIL [Suspect]
     Dosage: 500 MG, QHS
     Route: 048
  3. CLOZARIL [Suspect]
     Dosage: 600 MG, QHS
     Route: 048
  4. CLOZARIL [Suspect]
     Dosage: 600 MG, UNK
     Route: 048
     Dates: end: 20140226
  5. REMICADE [Suspect]
     Dosage: UNK
     Dates: start: 201306
  6. EPIVAL [Concomitant]
     Dosage: 1125 MG, QHS
     Route: 048
     Dates: start: 2002, end: 20140226
  7. SEROQUEL [Concomitant]
     Dosage: 50 MG, BID
     Dates: start: 2010, end: 20140226
  8. ETHOCIN [Concomitant]
     Dosage: 0.1 MG, QD
  9. AZATHIOPRINE [Concomitant]
     Dosage: 100 MG, QD
  10. AZATHIOPRINE [Concomitant]
     Dosage: 50 MG, QD
  11. LOPERAMIDE [Concomitant]
     Dosage: 4 MG, BID
  12. ASACOL [Concomitant]
     Dosage: 500 MG, 5QD
  13. FERROUS FUMARATE [Concomitant]
     Dosage: 300 MG, QD
  14. SALMON OIL [Concomitant]
  15. B50 [Concomitant]
  16. PREDNISONE [Concomitant]
     Indication: INFLAMMATORY BOWEL DISEASE
  17. ELTROXIN [Concomitant]
     Dosage: 0.1 MG, UNK
     Route: 048
  18. IRON [Concomitant]

REACTIONS (21)
  - Death [Fatal]
  - Inflammatory bowel disease [Not Recovered/Not Resolved]
  - Malaise [Unknown]
  - General physical health deterioration [Unknown]
  - Pyrexia [Unknown]
  - Confusional state [Unknown]
  - Renal failure [Unknown]
  - Intestinal obstruction [Unknown]
  - Antipsychotic drug level increased [Unknown]
  - Sepsis [Unknown]
  - Pancytopenia [Unknown]
  - Multi-organ failure [Unknown]
  - Disseminated tuberculosis [Unknown]
  - Neuromyopathy [Unknown]
  - White blood cell count decreased [Unknown]
  - Platelet count decreased [Unknown]
  - Disturbance in attention [Unknown]
  - Haemoglobin decreased [Unknown]
  - Tremor [Unknown]
  - Muscular weakness [Unknown]
  - Fatigue [Unknown]
